FAERS Safety Report 6535368-3 (Version None)
Quarter: 2010Q1

REPORT INFORMATION
  Report Type: 
  Country: None (occurrence: None)
  Receive Date: 20100105
  Receipt Date: 20091221
  Transmission Date: 20100710
  Serious: Yes (Hospitalization)
  Sender: FDA-Public Use
  Company Number: 235233J09USA

PATIENT
  Age: 51 Year
  Sex: Female

DRUGS (4)
  1. REBIF [Suspect]
     Indication: MULTIPLE SCLEROSIS
     Dosage: 44 MCG, 3 IN 1 WEEKS, SUBCUTANEOUS
     Route: 058
     Dates: start: 20080923
  2. CELEXA [Concomitant]
  3. VOLTAREN (DICLOFENAC /00372301/) [Concomitant]
  4. NORCO [Concomitant]

REACTIONS (6)
  - CONTUSION [None]
  - NECROTISING FASCIITIS [None]
  - SCAB [None]
  - SKIN GRAFT [None]
  - SKIN LACERATION [None]
  - STAPHYLOCOCCAL INFECTION [None]
